FAERS Safety Report 6296277-0 (Version None)
Quarter: 2009Q3

REPORT INFORMATION
  Report Type: 
  Country: None (occurrence: None)
  Receive Date: 20090804
  Receipt Date: 20090724
  Transmission Date: 20100115
  Serious: Yes (Life-Threatening)
  Sender: FDA-Public Use
  Company Number: PT-PFIZER INC-2009245974

PATIENT
  Age: 78 Year

DRUGS (13)
  1. CYKLOKAPRON [Suspect]
     Indication: PROCOAGULANT THERAPY
     Dosage: UNK
     Route: 042
     Dates: start: 20090617, end: 20090617
  2. MILRINONE [Concomitant]
     Dosage: UNK
     Route: 042
     Dates: start: 20090617, end: 20090617
  3. FUROSEMIDE [Concomitant]
     Dosage: UNK
     Route: 042
     Dates: start: 20090617, end: 20090617
  4. SODIUM CHLORIDE [Concomitant]
     Dosage: UNK
     Route: 042
     Dates: start: 20090617, end: 20090617
  5. SODIUM LACTATE [Concomitant]
     Dosage: UNK
     Route: 042
     Dates: start: 20090617, end: 20090617
  6. FENTANYL CITRATE [Concomitant]
     Indication: ANAESTHESIA
     Dosage: UNK
     Route: 042
     Dates: start: 20090617, end: 20090617
  7. MIDAZOLAM HYDROCHLORIDE [Concomitant]
     Indication: ANAESTHESIA
     Dosage: UNK
     Route: 042
     Dates: start: 20090617, end: 20090617
  8. PROPOFOL [Concomitant]
     Indication: ANAESTHESIA
     Dosage: UNK
     Route: 042
     Dates: start: 20090617, end: 20090618
  9. ROCURONIUM BROMIDE [Concomitant]
     Indication: ANAESTHESIA
     Dosage: UNK
     Route: 042
     Dates: start: 20090617, end: 20090617
  10. CEFAZOLIN SODIUM [Concomitant]
     Indication: ANAESTHESIA
     Dosage: UNK
     Route: 042
     Dates: start: 20090617, end: 20090619
  11. MAGNESIUM SULFATE [Concomitant]
     Dosage: UNK
     Route: 042
     Dates: start: 20090617, end: 20090617
  12. AMINOPHYLLINE [Concomitant]
     Dosage: UNK
     Route: 042
     Dates: start: 20090617, end: 20090617
  13. NORADRENALINE [Concomitant]
     Dosage: UNK
     Route: 042
     Dates: start: 20090617, end: 20090617

REACTIONS (1)
  - CONVULSION [None]
